FAERS Safety Report 17481090 (Version 2)
Quarter: 2020Q1

REPORT INFORMATION
  Report Type: Spontaneous
  Country: US (occurrence: US)
  Receive Date: 20200302
  Receipt Date: 20200313
  Transmission Date: 20200409
  Serious: Yes (Other)
  Sender: FDA-Public Use
  Company Number: US-ADVANZ PHARMA-202002000891

PATIENT

DRUGS (3)
  1. PREDNISOLONE. [Suspect]
     Active Substance: PREDNISOLONE
     Indication: CHRONIC GRAFT VERSUS HOST DISEASE
     Dosage: UNK UNK, QOD, EVERY ALTERNATE DAY
  2. PREDNISONE. [Suspect]
     Active Substance: PREDNISONE
     Indication: GRAFT VERSUS HOST DISEASE
     Dosage: 15 MG, QD
     Route: 048
     Dates: start: 20190408
  3. IBRUTINIB [Concomitant]
     Active Substance: IBRUTINIB
     Dosage: UNK UNK, QD (1 DAY)

REACTIONS (2)
  - Botryomycosis [Recovered/Resolved]
  - Staphylococcal skin infection [Recovered/Resolved]
